FAERS Safety Report 23025139 (Version 2)
Quarter: 2023Q4

REPORT INFORMATION
  Report Type: Report from Study
  Country: MX (occurrence: MX)
  Receive Date: 20231004
  Receipt Date: 20231006
  Transmission Date: 20240110
  Serious: Yes (Other)
  Sender: FDA-Public Use
  Company Number: MX-002147023-NVSC2022MX297758

PATIENT
  Age: 49 Year
  Sex: Female
  Weight: 58 kg

DRUGS (8)
  1. EXFORGE HCT [Suspect]
     Active Substance: AMLODIPINE BESYLATE\HYDROCHLOROTHIAZIDE\VALSARTAN
     Indication: Hypertension
     Dosage: 1 DOSAGE FORM ((5/160/12.5 MG), IN THE MORNING AND AT NIGHT
     Route: 048
     Dates: start: 202208, end: 202212
  2. EXFORGE HCT [Suspect]
     Active Substance: AMLODIPINE BESYLATE\HYDROCHLOROTHIAZIDE\VALSARTAN
     Dosage: 1 DOSAGE FORM ((5/160/12.5 MG), Q24H, IN THE MORNING
     Route: 048
     Dates: start: 202209
  3. EXFORGE HCT [Suspect]
     Active Substance: AMLODIPINE BESYLATE\HYDROCHLOROTHIAZIDE\VALSARTAN
     Dosage: 0.5 DOSAGE FORM, QD
     Route: 048
     Dates: start: 202212
  4. EXFORGE HCT [Suspect]
     Active Substance: AMLODIPINE BESYLATE\HYDROCHLOROTHIAZIDE\VALSARTAN
     Dosage: 1 ? (5/160/12.5 MG) (1 TABLE T IN THE MORNING AND ? AT NIGHT)
     Route: 048
     Dates: start: 202301, end: 20230219
  5. EXFORGE HCT [Suspect]
     Active Substance: AMLODIPINE BESYLATE\HYDROCHLOROTHIAZIDE\VALSARTAN
     Dosage: 0.5 DOSAGE FORM, BID (? (5/160/12.5 MG) (IN THE MORNING AND AT NIGHT))
     Route: 048
     Dates: start: 20230219
  6. EXFORGE HCT [Suspect]
     Active Substance: AMLODIPINE BESYLATE\HYDROCHLOROTHIAZIDE\VALSARTAN
     Dosage: 0.5 DOSAGE FORM, Q12H ((5/160/12 .5 MG))
     Route: 048
  7. PROPRANOLOL HYDROCHLORIDE [Concomitant]
     Active Substance: PROPRANOLOL HYDROCHLORIDE
     Indication: Hypertension
     Dosage: 1 DOSAGE FORM, Q12H
     Route: 048
     Dates: start: 202209
  8. PROPRANOLOL HYDROCHLORIDE [Concomitant]
     Active Substance: PROPRANOLOL HYDROCHLORIDE
     Dosage: 1 DOSAGE FORM, QD (EVERY 24 HOUR)
     Route: 048
     Dates: start: 202309

REACTIONS (14)
  - Hypothyroidism [Not Recovered/Not Resolved]
  - Hyperthyroidism [Unknown]
  - Blood pressure decreased [Recovered/Resolved]
  - Chest discomfort [Unknown]
  - Tachycardia [Unknown]
  - Poor quality sleep [Recovering/Resolving]
  - Thyroid disorder [Not Recovered/Not Resolved]
  - Blood cholesterol increased [Unknown]
  - Anxiety [Not Recovered/Not Resolved]
  - Blood glucose increased [Unknown]
  - Blood pressure increased [Recovered/Resolved]
  - Blood pressure increased [Not Recovered/Not Resolved]
  - Hypertension [Recovered/Resolved]
  - Off label use [Unknown]

NARRATIVE: CASE EVENT DATE: 20220801
